FAERS Safety Report 24527281 (Version 1)
Quarter: 2024Q4

REPORT INFORMATION
  Report Type: Report from Study
  Country: US (occurrence: US)
  Receive Date: 20241021
  Receipt Date: 20241021
  Transmission Date: 20250115
  Serious: No
  Sender: ROCHE
  Company Number: US-ROCHE-3233202

PATIENT
  Age: 84 Year
  Sex: Female

DRUGS (1)
  1. COTELLIC [Suspect]
     Active Substance: COBIMETINIB
     Indication: Histiocytosis
     Dosage: TAKE 1 TABLET BY MOUTH DAILY FOR 21 DAYS AND THEN STOP FOR 7 DAYS
     Route: 048

REACTIONS (3)
  - Alopecia [Unknown]
  - Trichorrhexis [Unknown]
  - Product label issue [Unknown]
